FAERS Safety Report 4432625-1 (Version None)
Quarter: 2004Q3

REPORT INFORMATION
  Report Type: 
  Country: None (occurrence: None)
  Receive Date: 20040825
  Receipt Date: 20040615
  Transmission Date: 20050211
  Serious: Yes (Hospitalization)
  Sender: FDA-Public Use
  Company Number: PHHO2004US08598

PATIENT
  Age: 36 Year
  Sex: Male
  Weight: 76 kg

DRUGS (3)
  1. GLEEVEC [Suspect]
     Indication: CHRONIC MYELOID LEUKAEMIA
     Dosage: 400 MG, BID
     Route: 048
     Dates: start: 20040511, end: 20040608
  2. GLEEVEC [Suspect]
     Dosage: NO TREATMENT
     Dates: start: 20040609, end: 20040614
  3. GLEEVEC [Suspect]
     Dosage: 400 MG, BID
     Route: 048
     Dates: start: 20040615

REACTIONS (3)
  - CELLULITIS [None]
  - LEUKOPENIA [None]
  - NEUTROPENIA [None]
